FAERS Safety Report 7277065-5 (Version None)
Quarter: 2011Q1

REPORT INFORMATION
  Report Type: 
  Country: None (occurrence: None)
  Receive Date: 20110207
  Receipt Date: 20091012
  Transmission Date: 20110831
  Serious: No
  Sender: FDA-Public Use
  Company Number: 2009BI032843

PATIENT
  Age: 46 Year
  Sex: Female

DRUGS (1)
  1. TYSABRI [Suspect]
     Indication: MULTIPLE SCLEROSIS
     Route: 042
     Dates: start: 20090812, end: 20101001

REACTIONS (7)
  - FALL [None]
  - HEADACHE [None]
  - FATIGUE [None]
  - MEMORY IMPAIRMENT [None]
  - DEPRESSION [None]
  - BODY TEMPERATURE INCREASED [None]
  - OROPHARYNGEAL PAIN [None]
